FAERS Safety Report 19997098 (Version 2)
Quarter: 2022Q2

REPORT INFORMATION
  Report Type: Spontaneous
  Country: US (occurrence: US)
  Receive Date: 20211026
  Receipt Date: 20220623
  Transmission Date: 20220721
  Serious: Yes (Death, Hospitalization, Other)
  Sender: FDA-Public Use
  Company Number: US-PFIZER INC-202101194109

PATIENT
  Age: 77 Year
  Sex: Male
  Weight: 68.027 kg

DRUGS (2)
  1. VYNDAMAX [Suspect]
     Active Substance: TAFAMIDIS
     Dosage: 61 MG
  2. LASIX [Suspect]
     Active Substance: FUROSEMIDE
     Dosage: UNK

REACTIONS (10)
  - Death [Fatal]
  - Suicide attempt [Unknown]
  - Depression [Unknown]
  - Hypotension [Unknown]
  - Cardiac disorder [Unknown]
  - Renal disorder [Unknown]
  - Fluid retention [Unknown]
  - Blood potassium decreased [Unknown]
  - Blood sodium decreased [Unknown]
  - Anaemia [Unknown]

NARRATIVE: CASE EVENT DATE: 20210920
